FAERS Safety Report 4742712-6 (Version None)
Quarter: 2005Q3

REPORT INFORMATION
  Report Type: 
  Country: None (occurrence: None)
  Receive Date: 20050810
  Receipt Date: 20050810
  Transmission Date: 20060218
  Serious: Yes (Death, Life-Threatening, Hospitalization)
  Sender: FDA-Public Use
  Company Number: None

PATIENT
  Age: 64 Year
  Sex: Male
  Weight: 92 kg

DRUGS (13)
  1. CISPLATIN [Suspect]
     Indication: METASTATIC GASTRIC CANCER
     Dosage: 25 IV
     Route: 042
     Dates: start: 20050715, end: 20050722
  2. IRINOTECAN (MG/M2) D1 AND D8 OF 21-DAY CYCLE [Suspect]
     Indication: METASTATIC GASTRIC CANCER
     Dosage: 55 IV
     Route: 042
     Dates: start: 20050715, end: 20050722
  3. CAPECITABINE (MG/M2) D1-14 OF 21-DAY CYCLE [Suspect]
     Indication: METASTATIC GASTRIC CANCER
     Dosage: 1400 ORAL
     Route: 048
     Dates: start: 20050715, end: 20050729
  4. ZOFRAN [Concomitant]
  5. VIAGRA [Concomitant]
  6. PRINIVIL [Concomitant]
  7. LIPITOR [Concomitant]
  8. HYDROCHLOROTHIAZIDE [Concomitant]
  9. DTO [Concomitant]
  10. ATENOLOL [Concomitant]
  11. DECADRON [Concomitant]
  12. COMPAZINE [Concomitant]
  13. ASPIRIN [Concomitant]

REACTIONS (13)
  - ATRIAL FIBRILLATION [None]
  - DIARRHOEA [None]
  - HYPONATRAEMIA [None]
  - HYPOTENSION [None]
  - MENTAL DISORDER [None]
  - METABOLIC ACIDOSIS [None]
  - NAUSEA [None]
  - NEPHROLITHIASIS [None]
  - NEUTROPENIA [None]
  - PNEUMONIA [None]
  - RENAL FAILURE [None]
  - SEPSIS [None]
  - WHITE BLOOD CELL COUNT DECREASED [None]
